FAERS Safety Report 5722117-1 (Version None)
Quarter: 2008Q2

REPORT INFORMATION
  Report Type: 
  Country: None (occurrence: None)
  Receive Date: 20080429
  Receipt Date: 20080422
  Transmission Date: 20081010
  Serious: Yes (Life-Threatening, Hospitalization)
  Sender: FDA-Public Use
  Company Number: US-ELI_LILLY_AND_COMPANY-US200804005599

PATIENT
  Sex: Female
  Weight: 114.29 kg

DRUGS (23)
  1. BYETTA [Suspect]
     Indication: TYPE 2 DIABETES MELLITUS
     Dosage: 5 UG, DAILY (1/D)
     Route: 058
     Dates: start: 20050501, end: 20060101
  2. BYETTA [Suspect]
     Dosage: 10 UG, 2/D
     Route: 058
     Dates: start: 20060101, end: 20070401
  3. BYETTA [Suspect]
     Dosage: 5 UG, DAILY (1/D)
     Route: 058
     Dates: start: 20080201, end: 20080301
  4. BYETTA [Suspect]
     Dosage: 10 UG, DAILY (1/D)
     Route: 058
     Dates: start: 20080301
  5. BYETTA [Suspect]
     Dosage: 10 UG, DAILY (1/D)
     Route: 058
     Dates: start: 20080301
  6. GLUCOPHAGE [Concomitant]
     Indication: TYPE 2 DIABETES MELLITUS
     Dosage: 1500 MG, EACH EVENING
     Route: 048
  7. GLUCOPHAGE [Concomitant]
     Dosage: 500 MG, EACH EVENING
     Route: 048
  8. HYZAAR [Concomitant]
     Indication: HYPERTENSION
     Dosage: UNK, DAILY (1/D)
     Route: 048
  9. ZOLOFT [Concomitant]
     Indication: DEPRESSION
     Dosage: 100 MG, DAILY (1/D)
     Route: 048
     Dates: start: 19900101
  10. SYNTHROID [Concomitant]
     Indication: HYPOTHYROIDISM
     Dosage: 0.175 UG, DAILY (1/D)
     Route: 048
     Dates: start: 19710101
  11. ASPIRIN [Concomitant]
     Indication: GENERAL PHYSICAL CONDITION
     Dosage: 81 MG, DAILY (1/D)
     Route: 048
  12. ATENOLOL [Concomitant]
     Indication: HYPERTENSION
     Dosage: 25 MG, DAILY (1/D)
     Route: 048
  13. HYALURONIC ACID [Concomitant]
     Indication: GENERAL PHYSICAL CONDITION
     Dosage: UNK, DAILY (1/D)
     Route: 048
     Dates: start: 20070101, end: 20070101
  14. HYALURONIC ACID [Concomitant]
     Dosage: UNK, DAILY (1/D)
     Route: 048
     Dates: start: 20070101
  15. GLUCOSAMINE W/CHONDROITIN [Concomitant]
     Indication: GENERAL PHYSICAL CONDITION
     Dosage: UNK, DAILY (1/D)
     Route: 048
     Dates: start: 20070101, end: 20070101
  16. GLUCOSAMINE W/CHONDROITIN [Concomitant]
     Dosage: UNK, DAILY (1/D)
     Route: 048
     Dates: start: 20070101
  17. CINNAMON [Concomitant]
     Indication: GENERAL PHYSICAL CONDITION
     Dosage: UNK, DAILY (1/D)
     Route: 048
     Dates: start: 20070101
  18. ORAL ANTIDIABETICS [Concomitant]
     Indication: DIABETES MELLITUS
     Dosage: UNK, 2/D
     Route: 047
     Dates: start: 20080201
  19. CALCIUM WITH VITAMIN D [Concomitant]
     Indication: GENERAL PHYSICAL CONDITION
     Dosage: 1000 MG, DAILY (1/D)
     Route: 048
  20. OMEGA 3 [Concomitant]
     Indication: GENERAL PHYSICAL CONDITION
     Dosage: 1000 MG, 2/D
     Route: 048
  21. VITAMIN E /001105/ [Concomitant]
     Indication: GENERAL PHYSICAL CONDITION
     Dosage: 400 IU, DAILY (1/D)
     Route: 048
  22. VITAMIN CAP [Concomitant]
     Indication: GENERAL PHYSICAL CONDITION
     Dosage: UNK, DAILY (1/D)
     Route: 048
  23. VYTORIN [Concomitant]
     Indication: BLOOD CHOLESTEROL
     Dosage: UNK, DAILY (1/D)
     Route: 048
     Dates: start: 20050101, end: 20080301

REACTIONS (18)
  - ANAEMIA [None]
  - ARTHROPATHY [None]
  - BACK PAIN [None]
  - BLOOD GLUCOSE INCREASED [None]
  - CANDIDIASIS [None]
  - CHEST DISCOMFORT [None]
  - DEEP VEIN THROMBOSIS [None]
  - DIARRHOEA [None]
  - DRUG INEFFECTIVE [None]
  - FLATULENCE [None]
  - GASTROOESOPHAGEAL REFLUX DISEASE [None]
  - MOBILITY DECREASED [None]
  - NAUSEA [None]
  - PYREXIA [None]
  - RESPIRATORY DISTRESS [None]
  - STAPHYLOCOCCAL INFECTION [None]
  - WEIGHT INCREASED [None]
  - WHITE BLOOD CELL COUNT INCREASED [None]
